FAERS Safety Report 4289231-1 (Version None)
Quarter: 2004Q1

REPORT INFORMATION
  Report Type: 
  Country: None (occurrence: None)
  Receive Date: 20040205
  Receipt Date: 20040126
  Transmission Date: 20041129
  Serious: Yes (Hospitalization)
  Sender: FDA-Public Use
  Company Number: 2003191011GB

PATIENT
  Age: 67 Year
  Sex: Female
  Weight: 90 kg

DRUGS (2)
  1. EPIRUBICIN [Suspect]
     Indication: BREAST CANCER IN SITU
     Dosage: 100 MG, CYCLE 3, IV
     Route: 042
     Dates: start: 20030815, end: 20031017
  2. DOCETAXEL (DOCETAXEL) [Suspect]
     Indication: BREAST CANCER IN SITU
     Dosage: 200 MG, CYCLIC, IV
     Route: 042
     Dates: start: 20031114, end: 20031205

REACTIONS (5)
  - CHILLS [None]
  - COUGH [None]
  - DIARRHOEA [None]
  - FEBRILE NEUTROPENIA [None]
  - LEUKOPENIA [None]
